FAERS Safety Report 12469895 (Version 1)
Quarter: 2016Q2

REPORT INFORMATION
  Report Type: Spontaneous
  Country: US (occurrence: US)
  Receive Date: 20160615
  Receipt Date: 20160615
  Transmission Date: 20160815
  Serious: No
  Sender: FDA-Public Use
  Company Number: US-BAYER-2016-115809

PATIENT
  Age: 63 Year
  Sex: Female
  Weight: 68.2 kg

DRUGS (6)
  1. MIRALAX [Suspect]
     Active Substance: POLYETHYLENE GLYCOL 3350
     Indication: COLONOSCOPY
     Dosage: 1 DF, UNK
     Route: 048
     Dates: start: 201506
  2. VANCOMYCIN [Concomitant]
     Active Substance: VANCOMYCIN
  3. METOPROLOL. [Concomitant]
     Active Substance: METOPROLOL
  4. DOXYCYCLINE. [Concomitant]
     Active Substance: DOXYCYCLINE
  5. APIXABAN [Concomitant]
     Active Substance: APIXABAN
  6. MIRALAX [Suspect]
     Active Substance: POLYETHYLENE GLYCOL 3350
     Indication: POLYPECTOMY

REACTIONS (3)
  - Product use issue [None]
  - Drug ineffective [None]
  - Off label use [None]

NARRATIVE: CASE EVENT DATE: 2015
